FAERS Safety Report 6884680-7 (Version None)
Quarter: 2010Q3

REPORT INFORMATION
  Report Type: 
  Country: None (occurrence: None)
  Receive Date: 20100729
  Receipt Date: 20070820
  Transmission Date: 20110219
  Serious: Yes (Other)
  Sender: FDA-Public Use
  Company Number: US-PFIZER INC-2007063113

PATIENT
  Sex: Female
  Weight: 90.909 kg

DRUGS (4)
  1. CELEBREX [Suspect]
     Indication: SCIATICA
     Dates: start: 20070728, end: 20070728
  2. MONTELUKAST SODIUM [Concomitant]
  3. ADVAIR DISKUS 100/50 [Concomitant]
  4. DILANTIN [Concomitant]

REACTIONS (2)
  - PRURITUS [None]
  - URTICARIA [None]
